FAERS Safety Report 6517062-8 (Version None)
Quarter: 2009Q4

REPORT INFORMATION
  Report Type: 
  Country: None (occurrence: None)
  Receive Date: 20091223
  Receipt Date: 20091217
  Transmission Date: 20100525
  Serious: Yes (Hospitalization)
  Sender: FDA-Public Use
  Company Number: US-BRISTOL-MYERS SQUIBB COMPANY-14900674

PATIENT
  Age: 50 Year
  Sex: Male
  Weight: 57 kg

DRUGS (2)
  1. PACLITAXEL [Suspect]
     Indication: NON-SMALL CELL LUNG CANCER
     Route: 065
  2. CARBOPLATIN [Suspect]
     Indication: NON-SMALL CELL LUNG CANCER
     Route: 065

REACTIONS (4)
  - FEBRILE NEUTROPENIA [None]
  - MEDIASTINITIS [None]
  - OSTEOMYELITIS [None]
  - WEIGHT DECREASED [None]
